FAERS Safety Report 8978338 (Version 2)
Quarter: 2013Q3

REPORT INFORMATION
  Report Type: Spontaneous
  Country: US (occurrence: US)
  Receive Date: 20121220
  Receipt Date: 20130725
  Transmission Date: 20140515
  Serious: Yes (Other)
  Sender: FDA-Public Use
  Company Number: US-009507513-1212USA002591

PATIENT
  Sex: Male

DRUGS (2)
  1. REBETOL [Suspect]
     Indication: HEPATITIS C
     Dosage: UNK
     Dates: start: 20030101, end: 20030202
  2. INTERFERON ALFA-2B [Suspect]
     Indication: HEPATITIS C
     Dosage: UNK
     Dates: start: 20030101, end: 20030202

REACTIONS (12)
  - Chronic obstructive pulmonary disease [Unknown]
  - Malaise [Unknown]
  - Irritability [Unknown]
  - Hypertension [Unknown]
  - Confusional state [Unknown]
  - Depression [Unknown]
  - Weight decreased [Unknown]
  - Skin disorder [Unknown]
  - Depression [Unknown]
  - Decreased appetite [Unknown]
  - Insomnia [Unknown]
  - Irritability [Unknown]
